FAERS Safety Report 19309482 (Version 3)
Quarter: 2021Q2

REPORT INFORMATION
  Report Type: Report from Study
  Country: GB (occurrence: GB)
  Receive Date: 20210526
  Receipt Date: 20210628
  Transmission Date: 20210717
  Serious: No
  Sender: FDA-Public Use
  Company Number: GB-JNJFOC-20210529242

PATIENT
  Sex: Male

DRUGS (2)
  1. STELARA [Suspect]
     Active Substance: USTEKINUMAB
     Indication: CROHN^S DISEASE
     Dosage: STRENGTH: 90.00 MG/ML
     Route: 058
     Dates: start: 20191016
  2. STELARA [Suspect]
     Active Substance: USTEKINUMAB

REACTIONS (4)
  - Product dose omission issue [Unknown]
  - Injection site pain [Unknown]
  - Needle issue [Unknown]
  - Adverse event [Unknown]

NARRATIVE: CASE EVENT DATE: 20210510
